FAERS Safety Report 6504914-8 (Version None)
Quarter: 2009Q4

REPORT INFORMATION
  Report Type: 
  Country: None (occurrence: None)
  Receive Date: 20091218
  Receipt Date: 20091209
  Transmission Date: 20100525
  Serious: Yes (Death)
  Sender: FDA-Public Use
  Company Number: JP-SANOFI-AVENTIS-2009SA007470

PATIENT
  Age: 45 Year
  Sex: Male

DRUGS (5)
  1. ZOLPIDEM TARTRATE [Suspect]
     Route: 048
     Dates: start: 20091120, end: 20091127
  2. MIRTAZAPINE [Suspect]
     Route: 048
     Dates: start: 20091120, end: 20091126
  3. MIRTAZAPINE [Suspect]
     Route: 048
     Dates: start: 20091127, end: 20091127
  4. ALCOHOL [Suspect]
     Indication: ALCOHOL USE
     Dosage: PATIENT SEEMED TO HAVE DRUNK A LARGE QUANTITY OF ALCOHOL.
     Route: 048
  5. RIZE [Concomitant]
     Route: 048
     Dates: start: 20091120, end: 20091127

REACTIONS (2)
  - DEATH [None]
  - INTENTIONAL OVERDOSE [None]
